FAERS Safety Report 21007867 (Version 1)
Quarter: 2022Q2

REPORT INFORMATION
  Report Type: Other
  Country: BR (occurrence: BR)
  Receive Date: 20220627
  Receipt Date: 20220627
  Transmission Date: 20220720
  Serious: No
  Sender: FDA-Public Use
  Company Number: BR-TOLMAR, INC.-21BR028974

PATIENT
  Age: 10 Year
  Sex: Male

DRUGS (4)
  1. ELIGARD [Suspect]
     Active Substance: LEUPROLIDE ACETATE
     Indication: Precocious puberty
     Dosage: 45 MILLIGRAM,  EVERY 5 MONTHS
     Route: 058
     Dates: start: 20210207
  2. ELIGARD [Suspect]
     Active Substance: LEUPROLIDE ACETATE
     Dosage: 45 MILLIGRAM,  EVERY 5 MONTHS
     Route: 058
     Dates: start: 20210716
  3. ELIGARD [Suspect]
     Active Substance: LEUPROLIDE ACETATE
     Dosage: 45 MILLIGRAM,  EVERY 5 MONTHS
     Route: 058
     Dates: start: 2021
  4. ELIGARD [Suspect]
     Active Substance: LEUPROLIDE ACETATE
     Dosage: 45 MILLIGRAM,  EVERY 5 MONTHS
     Route: 058
     Dates: start: 2022

REACTIONS (6)
  - Injection site mass [Recovered/Resolved]
  - Product preparation error [Recovered/Resolved]
  - Off label use [Not Recovered/Not Resolved]
  - Swelling [Recovered/Resolved]
  - Injection site erythema [Not Recovered/Not Resolved]
  - Injection site pain [Recovered/Resolved]

NARRATIVE: CASE EVENT DATE: 20210201
